FAERS Safety Report 9602687 (Version 1)
Quarter: 2013Q4

REPORT INFORMATION
  Report Type: Spontaneous
  Country: US (occurrence: US)
  Receive Date: 20131007
  Receipt Date: 20131007
  Transmission Date: 20140711
  Serious: No
  Sender: FDA-Public Use
  Company Number: US-PFIZER INC-2013286702

PATIENT
  Age: 45 Year
  Sex: Male
  Weight: 66.67 kg

DRUGS (3)
  1. CHANTIX [Suspect]
     Indication: SMOKING CESSATION THERAPY
     Dosage: UNK
     Dates: start: 201302, end: 2013
  2. CHANTIX [Suspect]
     Dosage: UNK
     Dates: start: 2013, end: 2013
  3. CHANTIX [Suspect]
     Dosage: UNK
     Dates: start: 2013

REACTIONS (1)
  - Abnormal dreams [Unknown]
